FAERS Safety Report 23257174 (Version 1)
Quarter: 2023Q4

REPORT INFORMATION
  Report Type: Report from Study
  Country: CA (occurrence: CA)
  Receive Date: 20231204
  Receipt Date: 20231204
  Transmission Date: 20240110
  Serious: Yes (Other)
  Sender: FDA-Public Use
  Company Number: CA-JNJFOC-20231176025

PATIENT
  Age: 3 Decade
  Sex: Female

DRUGS (1)
  1. SIMPONI [Suspect]
     Active Substance: GOLIMUMAB
     Indication: Psoriatic arthropathy
     Route: 058
     Dates: start: 20220615

REACTIONS (6)
  - Pneumonia [Not Recovered/Not Resolved]
  - Inappropriate schedule of product administration [Unknown]
  - Pharyngitis [Not Recovered/Not Resolved]
  - Localised infection [Not Recovered/Not Resolved]
  - COVID-19 [Not Recovered/Not Resolved]
  - Ear infection [Not Recovered/Not Resolved]
